FAERS Safety Report 16456918 (Version 1)
Quarter: 2019Q3

REPORT INFORMATION
  Report Type: Spontaneous
  Country: US (occurrence: US)
  Receive Date: 20190619
  Receipt Date: 20190619
  Transmission Date: 20191004
  Serious: Yes (Other)
  Sender: FDA-Public Use
  Company Number: None

PATIENT
  Age: 69 Year
  Sex: Female
  Weight: 112.5 kg

DRUGS (5)
  1. BELBUCA [Suspect]
     Active Substance: BUPRENORPHINE HYDROCHLORIDE
     Indication: PAIN
     Dosage: ?          QUANTITY:1 FILM;OTHER ROUTE:INSIDE CHEEK?
  2. ZOLOFT [Concomitant]
     Active Substance: SERTRALINE HYDROCHLORIDE
  3. DAILY MULVITAMIN [Concomitant]
  4. TURMERIC [Concomitant]
     Active Substance: HERBALS\TURMERIC
  5. GLUCOSAMINE CHOINDROITIN [Concomitant]

REACTIONS (9)
  - Dizziness [None]
  - Urinary incontinence [None]
  - Infection [None]
  - Nightmare [None]
  - Oedema peripheral [None]
  - Nausea [None]
  - Fall [None]
  - Rhinorrhoea [None]
  - Balance disorder [None]

NARRATIVE: CASE EVENT DATE: 20190510
